FAERS Safety Report 5275787-9 (Version None)
Quarter: 2007Q1

REPORT INFORMATION
  Report Type: 
  Country: None (occurrence: None)
  Receive Date: 20070326
  Receipt Date: 20070320
  Transmission Date: 20070707
  Serious: Yes (Hospitalization)
  Sender: FDA-Public Use
  Company Number: JP-JPN-A200701184

PATIENT
  Age: 12 Year
  Sex: Female

DRUGS (5)
  1. RELENZA [Suspect]
     Indication: INFLUENZA
     Dosage: 10MG PER DAY
     Route: 055
     Dates: start: 20070316, end: 20070316
  2. CALONAL [Concomitant]
     Route: 065
  3. DASEN [Concomitant]
     Route: 048
  4. ASTOMIN [Concomitant]
     Route: 048
  5. MUCOSOLVAN [Concomitant]
     Route: 048

REACTIONS (2)
  - ABNORMAL BEHAVIOUR [None]
  - EYE LUXATION [None]
